FAERS Safety Report 15995315 (Version 3)
Quarter: 2019Q3

REPORT INFORMATION
  Report Type: Spontaneous
  Country: JP (occurrence: JP)
  Receive Date: 20190222
  Receipt Date: 20190730
  Transmission Date: 20191004
  Serious: Yes (Other)
  Sender: FDA-Public Use
  Company Number: JP-ROCHE-2269613

PATIENT
  Age: 79 Year
  Sex: Male

DRUGS (1)
  1. XOFLUZA [Suspect]
     Active Substance: BALOXAVIR MARBOXIL
     Indication: INFLUENZA
     Route: 048
     Dates: start: 20190112, end: 20190112

REACTIONS (2)
  - Acute kidney injury [Unknown]
  - Nausea [Unknown]

NARRATIVE: CASE EVENT DATE: 20190113
